FAERS Safety Report 16560740 (Version 1)
Quarter: 2019Q3

REPORT INFORMATION
  Report Type: Spontaneous
  Country: US (occurrence: US)
  Receive Date: 20190711
  Receipt Date: 20190711
  Transmission Date: 20191004
  Serious: No
  Sender: FDA-Public Use
  Company Number: US-SA-2019SA185681

PATIENT
  Sex: Female

DRUGS (1)
  1. PRALUENT [Suspect]
     Active Substance: ALIROCUMAB
     Indication: ARTERIOSCLEROSIS CORONARY ARTERY
     Dosage: 75 MG, QOW
     Route: 058
     Dates: start: 201906

REACTIONS (3)
  - Abdominal pain upper [Recovered/Resolved]
  - Injection site pain [Unknown]
  - Influenza like illness [Recovered/Resolved]
